FAERS Safety Report 11313138 (Version 1)
Quarter: 2015Q3

REPORT INFORMATION
  Report Type: Spontaneous
  Country: US (occurrence: US)
  Receive Date: 20150727
  Receipt Date: 20150727
  Transmission Date: 20151125
  Serious: No
  Sender: FDA-Public Use
  Company Number: US-ABBVIE-14P-163-1296421-00

PATIENT
  Age: 42 Year
  Sex: Female

DRUGS (2)
  1. SYNTHROID [Suspect]
     Active Substance: LEVOTHYROXINE SODIUM
     Indication: HYPOTHYROIDISM
     Route: 065
  2. SYNTHROID [Suspect]
     Active Substance: LEVOTHYROXINE SODIUM
     Indication: HYPOTHYROIDISM
     Route: 065

REACTIONS (10)
  - Nervousness [Unknown]
  - Head discomfort [Unknown]
  - Tremor [Unknown]
  - Autoimmune thyroiditis [Unknown]
  - Feeling abnormal [Unknown]
  - Malaise [Unknown]
  - Panic attack [Unknown]
  - Hyperthyroidism [Unknown]
  - Dizziness [Unknown]
  - Blood pressure fluctuation [Unknown]
